FAERS Safety Report 8190108-X (Version None)
Quarter: 2012Q1

REPORT INFORMATION
  Report Type: 
  Country: None (occurrence: None)
  Receive Date: 20120307
  Receipt Date: 20120307
  Transmission Date: 20120608
  Serious: Yes (Life-Threatening, Hospitalization, Disabling)
  Sender: FDA-Public Use
  Company Number: None

PATIENT
  Age: 79 Year
  Sex: Male
  Weight: 83.461 kg

DRUGS (1)
  1. ROCEPHIN [Suspect]
     Indication: PNEUMONIA
     Dosage: 1/2 BAG OF IV
     Route: 041
     Dates: start: 20120224, end: 20120224

REACTIONS (9)
  - STEVENS-JOHNSON SYNDROME [None]
  - CONFUSIONAL STATE [None]
  - CORONARY ARTERY THROMBOSIS [None]
  - CORONARY ARTERY OCCLUSION [None]
  - MYOCARDIAL INFARCTION [None]
  - PARANOIA [None]
  - HYPERSENSITIVITY [None]
  - PARAESTHESIA [None]
  - EYE DISORDER [None]
